FAERS Safety Report 6143468-5 (Version None)
Quarter: 2009Q2

REPORT INFORMATION
  Report Type: 
  Country: None (occurrence: None)
  Receive Date: 20090403
  Receipt Date: 20090325
  Transmission Date: 20091009
  Serious: Yes (Other)
  Sender: FDA-Public Use
  Company Number: PHHY2009BR07404

PATIENT
  Age: 68 Year
  Sex: Male

DRUGS (2)
  1. DIOVAN AMLO FIX [Suspect]
     Dosage: 320/10 MG, UNK
     Route: 048
     Dates: start: 20081201, end: 20090201
  2. DIOVAN AMLO FIX [Suspect]
     Dosage: 320/10MG, 1 TABLET PER DAY
     Route: 048
     Dates: start: 20090320

REACTIONS (8)
  - ASTHENIA [None]
  - BIOPSY PROSTATE ABNORMAL [None]
  - BLOOD CHOLESTEROL INCREASED [None]
  - JOINT SWELLING [None]
  - OEDEMA PERIPHERAL [None]
  - PENILE SWELLING [None]
  - PROSTATE CANCER [None]
  - SURGERY [None]
